FAERS Safety Report 15896938 (Version 1)
Quarter: 2019Q1

REPORT INFORMATION
  Report Type: Spontaneous
  Country: NL (occurrence: NL)
  Receive Date: 20190131
  Receipt Date: 20190131
  Transmission Date: 20190417
  Serious: Yes (Death)
  Sender: FDA-Public Use
  Company Number: NL-FRESENIUS KABI-FK201901034

PATIENT
  Age: 67 Year
  Sex: Female

DRUGS (6)
  1. AMOXICILLIN. [Concomitant]
     Active Substance: AMOXICILLIN
     Indication: ENCEPHALITIS BRAIN STEM
  2. GENTAMICIN. [Concomitant]
     Active Substance: GENTAMICIN
     Indication: ENCEPHALITIS BRAIN STEM
  3. CEFTRIAXONE. [Concomitant]
     Active Substance: CEFTRIAXONE
     Indication: LYME DISEASE
     Dosage: UNKNOWN
     Route: 042
  4. DEXAMETHASONE INJECTION (MANUFACTURER UNKNOWN) [Suspect]
     Active Substance: DEXAMETHASONE
     Indication: LYME DISEASE
     Dosage: UNKNOWN
     Route: 042
  5. GENTAMICIN. [Concomitant]
     Active Substance: GENTAMICIN
     Indication: LISTERIA ENCEPHALITIS
     Route: 065
  6. AMOXICILLIN. [Concomitant]
     Active Substance: AMOXICILLIN
     Indication: LISTERIA ENCEPHALITIS
     Route: 065

REACTIONS (4)
  - Listeria encephalitis [Fatal]
  - Encephalitis brain stem [Fatal]
  - Condition aggravated [Fatal]
  - Product prescribing error [Fatal]
